FAERS Safety Report 9395622 (Version 2)
Quarter: 2013Q3

REPORT INFORMATION
  Report Type: Report from Study
  Country: US (occurrence: US)
  Receive Date: 20130711
  Receipt Date: 20130806
  Transmission Date: 20140515
  Serious: Yes (Other)
  Sender: FDA-Public Use
  Company Number: US-PURDUE-USA-2013-0104316

PATIENT
  Age: 11 Year
  Sex: Female
  Weight: 30.48 kg

DRUGS (8)
  1. BTDS PATCH [Suspect]
     Indication: PAIN
     Dosage: 5 MCG/HR, WEEKLY
     Route: 062
     Dates: start: 20130628, end: 20130705
  2. BTDS PATCH [Suspect]
     Indication: EPSTEIN-BARR VIRUS INFECTION
     Dosage: 2.5 MCG/HR, WEEKLY
     Route: 062
     Dates: start: 20130625, end: 20130628
  3. TRAMADOL                           /00599202/ [Concomitant]
     Dosage: 50-100MG
     Route: 048
     Dates: start: 20130328
  4. NEURONTIN [Concomitant]
     Indication: PAIN
     Dosage: 600 MG, TID
     Route: 048
     Dates: start: 20130410
  5. VALIUM                             /00017001/ [Concomitant]
     Indication: MUSCLE SPASMS
     Dosage: 5 MG, HS
     Route: 048
     Dates: start: 20130405
  6. VITAMIN D3 [Concomitant]
     Indication: MUSCLE SPASMS
     Dosage: 2000 UNIT, AM
     Route: 048
     Dates: start: 20130324
  7. VITAMIN D3 [Concomitant]
     Indication: EPSTEIN-BARR VIRUS INFECTION
  8. IBUPROFEN [Concomitant]
     Indication: PAIN
     Dosage: 400 MG, PRN
     Route: 048
     Dates: start: 2012

REACTIONS (1)
  - Atrioventricular block first degree [Recovered/Resolved]
